FAERS Safety Report 15732859 (Version 4)
Quarter: 2019Q2

REPORT INFORMATION
  Report Type: Report from Study
  Country: None (occurrence: US)
  Receive Date: 20181217
  Receipt Date: 20190502
  Transmission Date: 20190711
  Serious: Yes (Other)
  Sender: FDA-Public Use
  Company Number: US-ABBVIE-18K-163-2589985-00

PATIENT
  Age: 76 Year
  Sex: Female
  Weight: 64.47 kg

DRUGS (5)
  1. HUMIRA [Suspect]
     Active Substance: ADALIMUMAB
     Indication: CROHN^S DISEASE
     Route: 058
     Dates: start: 20180312
  2. METFORMIN [Concomitant]
     Active Substance: METFORMIN HYDROCHLORIDE
     Indication: BLOOD GLUCOSE
  3. LEVOTHYROXINE. [Concomitant]
     Active Substance: LEVOTHYROXINE
     Indication: THYROID DISORDER
  4. LISINOPRIL. [Concomitant]
     Active Substance: LISINOPRIL
     Indication: BLOOD PRESSURE MEASUREMENT
  5. PRAVASTATIN. [Concomitant]
     Active Substance: PRAVASTATIN
     Indication: BLOOD CHOLESTEROL

REACTIONS (10)
  - Blood glucose abnormal [Unknown]
  - Hypotension [Recovered/Resolved]
  - Blood iron decreased [Unknown]
  - Fatigue [Unknown]
  - Vision blurred [Unknown]
  - Renal cancer [Unknown]
  - Gastrointestinal stromal tumour [Unknown]
  - Constipation [Unknown]
  - Dysstasia [Unknown]
  - Visual impairment [Unknown]

NARRATIVE: CASE EVENT DATE: 20181205
